FAERS Safety Report 8138742-7 (Version None)
Quarter: 2012Q1

REPORT INFORMATION
  Report Type: 
  Country: None (occurrence: None)
  Receive Date: 20120215
  Receipt Date: 20120206
  Transmission Date: 20120608
  Serious: Yes (Disabling)
  Sender: FDA-Public Use
  Company Number: JP-GLAXOSMITHKLINE-B0710789A

PATIENT
  Sex: Male

DRUGS (9)
  1. CARBAMAZEPINE [Concomitant]
     Dosage: 800MG PER DAY
     Route: 048
     Dates: start: 20090901
  2. LAMICTAL [Suspect]
     Indication: EPILEPSY
     Dosage: 50MG PER DAY
     Route: 048
     Dates: start: 20100511, end: 20100803
  3. PHENYTOIN SODIUM CAP [Concomitant]
     Dosage: 200MG PER DAY
     Route: 048
     Dates: start: 20090901
  4. LAMICTAL [Suspect]
     Dosage: 100MG PER DAY
     Route: 048
     Dates: start: 20100803, end: 20100928
  5. LAMICTAL [Suspect]
     Dosage: 50MG PER DAY
     Route: 048
     Dates: start: 20100928, end: 20101026
  6. ZYPREXA [Concomitant]
     Indication: AFFECT LABILITY
     Dosage: 1.25MG PER DAY
     Route: 048
     Dates: start: 20100316, end: 20101026
  7. AKINETON [Concomitant]
     Indication: ADVERSE REACTION
     Dosage: 1MG PER DAY
     Route: 048
     Dates: start: 20060822
  8. VALPROATE SODIUM [Concomitant]
     Route: 048
  9. ZYPREXA [Concomitant]
     Dosage: 2.5MG PER DAY
     Route: 048
     Dates: start: 20101026

REACTIONS (5)
  - ABNORMAL BEHAVIOUR [None]
  - PORIOMANIA [None]
  - HALLUCINATION [None]
  - HALLUCINATION, VISUAL [None]
  - PSYCHOMOTOR HYPERACTIVITY [None]
